FAERS Safety Report 8106758-2 (Version None)
Quarter: 2012Q1

REPORT INFORMATION
  Report Type: 
  Country: None (occurrence: None)
  Receive Date: 20120202
  Receipt Date: 20120202
  Transmission Date: 20120608
  Serious: Yes (Death, Other)
  Sender: FDA-Public Use
  Company Number: US-JNJFOC-20111211947

PATIENT
  Age: 5 Year
  Sex: Male

DRUGS (1)
  1. FENTANYL CITRATE [Suspect]
     Indication: PRODUCT USED FOR UNKNOWN INDICATION
     Route: 065

REACTIONS (4)
  - ADVERSE DRUG REACTION [None]
  - RETINAL HAEMORRHAGE [None]
  - TOXICITY TO VARIOUS AGENTS [None]
  - HYPOXIC-ISCHAEMIC ENCEPHALOPATHY [None]
